FAERS Safety Report 21921312 (Version 1)
Quarter: 2023Q1

REPORT INFORMATION
  Report Type: Spontaneous
  Country: FR (occurrence: FR)
  Receive Date: 20230127
  Receipt Date: 20230127
  Transmission Date: 20230418
  Serious: Yes (Death)
  Sender: FDA-Public Use
  Company Number: None

PATIENT
  Age: 67 Year
  Sex: Female
  Weight: 58 kg

DRUGS (2)
  1. CLARITHROMYCIN [Suspect]
     Active Substance: CLARITHROMYCIN
     Indication: Bronchitis
     Dosage: 1 GRAM, QD
     Route: 048
     Dates: start: 20221201, end: 20221207
  2. TECLISTAMAB [Suspect]
     Active Substance: TECLISTAMAB
     Indication: Plasma cell myeloma
     Dosage: UNK SEE COMMENTS
     Route: 058
     Dates: start: 20221024, end: 20221205

REACTIONS (3)
  - Septic shock [Fatal]
  - Agranulocytosis [Fatal]
  - Lung disorder [Fatal]

NARRATIVE: CASE EVENT DATE: 20221207
